FAERS Safety Report 13236953 (Version 1)
Quarter: 2017Q1

REPORT INFORMATION
  Report Type: Spontaneous
  Country: US (occurrence: US)
  Receive Date: 20170215
  Receipt Date: 20170215
  Transmission Date: 20170428
  Serious: No
  Sender: FDA-Public Use
  Company Number: US-LANTHEUS-LMI-2016-00124

PATIENT
  Age: 53 Year
  Sex: Male
  Weight: 109 kg

DRUGS (1)
  1. DEFINITY [Suspect]
     Active Substance: PERFLUTREN
     Indication: ECHOCARDIOGRAM
     Dosage: A TOTAL OF 4 ML DILUTED DEFINITY (ROUTE OF ADMINISTRATION NOT PROVIDED)
     Route: 065
     Dates: start: 20160307, end: 20160307

REACTIONS (5)
  - Dizziness [Recovered/Resolved]
  - Pruritus [Recovered/Resolved]
  - Burning sensation [Recovered/Resolved]
  - Urticaria [Recovered/Resolved]
  - Hyperhidrosis [Recovered/Resolved]

NARRATIVE: CASE EVENT DATE: 20160307
